FAERS Safety Report 25310327 (Version 1)
Quarter: 2025Q2

REPORT INFORMATION
  Report Type: Spontaneous
  Country: DK (occurrence: DK)
  Receive Date: 20250514
  Receipt Date: 20250514
  Transmission Date: 20250717
  Serious: Yes (Hospitalization)
  Sender: CELLTRION
  Company Number: DK-ROCHE-10000117133

PATIENT

DRUGS (32)
  1. RITUXIMAB [Suspect]
     Active Substance: RITUXIMAB
     Indication: Diffuse large B-cell lymphoma stage IV
     Route: 042
     Dates: start: 20240930, end: 20240930
  2. EPCORITAMAB [Suspect]
     Active Substance: EPCORITAMAB
     Indication: Diffuse large B-cell lymphoma stage IV
     Route: 058
     Dates: start: 20241001, end: 20241001
  3. CYCLOPHOSPHAMIDE [Suspect]
     Active Substance: CYCLOPHOSPHAMIDE
     Indication: Diffuse large B-cell lymphoma stage IV
     Route: 042
     Dates: start: 20240930, end: 20240930
  4. DOXORUBICIN [Suspect]
     Active Substance: DOXORUBICIN
     Indication: Diffuse large B-cell lymphoma stage IV
     Route: 042
     Dates: start: 20240930, end: 20240930
  5. VINCRISTINE [Suspect]
     Active Substance: VINCRISTINE
     Indication: Diffuse large B-cell lymphoma stage IV
     Route: 042
     Dates: start: 20240930, end: 20240930
  6. PREDNISONE [Suspect]
     Active Substance: PREDNISONE
     Indication: Diffuse large B-cell lymphoma stage IV
     Route: 048
     Dates: start: 20240930, end: 20241004
  7. CETIRIZINE [Concomitant]
     Active Substance: CETIRIZINE HYDROCHLORIDE
     Route: 048
     Dates: start: 20241016, end: 20241016
  8. ACETAMINOPHEN [Concomitant]
     Active Substance: ACETAMINOPHEN
     Route: 048
     Dates: start: 20241016, end: 20241016
  9. ACETAMINOPHEN [Concomitant]
     Active Substance: ACETAMINOPHEN
     Dates: start: 20240925
  10. PREDNISOLONE [Concomitant]
     Active Substance: PREDNISOLONE
     Route: 048
     Dates: start: 20241009, end: 20241009
  11. DEXAMETHASONE [Concomitant]
     Active Substance: DEXAMETHASONE
     Route: 048
     Dates: start: 20241009, end: 20241009
  12. DEXAMETHASONE [Concomitant]
     Active Substance: DEXAMETHASONE
     Route: 048
     Dates: start: 20241016
  13. DEXAMETHASONE [Concomitant]
     Active Substance: DEXAMETHASONE
     Route: 048
     Dates: start: 20241010, end: 20241012
  14. SODIUM PICOSULFATE [Concomitant]
     Active Substance: SODIUM PICOSULFATE
     Dates: start: 20240918, end: 20240925
  15. POLYETHYLENE GLYCOLS [Concomitant]
     Active Substance: POLYETHYLENE GLYCOLS
     Dates: start: 20240918
  16. ONDANSETRON [Concomitant]
     Active Substance: ONDANSETRON
     Dates: start: 20240921, end: 20241024
  17. PEGFILGRASTIM [Concomitant]
     Active Substance: PEGFILGRASTIM
     Dates: start: 20241004, end: 20241004
  18. VALACYCLOVIR HYDROCHLORIDE [Concomitant]
     Active Substance: VALACYCLOVIR HYDROCHLORIDE
     Dates: start: 20240930
  19. NICOTINE [Concomitant]
     Active Substance: NICOTINE
     Dates: start: 20240922
  20. ALLOPURINOL [Concomitant]
     Active Substance: ALLOPURINOL
     Dates: start: 20240921
  21. NYSTATIN [Concomitant]
     Active Substance: NYSTATIN
     Dates: start: 20240924
  22. BISACODYL [Concomitant]
     Active Substance: BISACODYL
     Dates: start: 20240922
  23. ALBUTEROL [Concomitant]
     Active Substance: ALBUTEROL
     Dates: start: 20221012
  24. CANDESARTAN [Concomitant]
     Active Substance: CANDESARTAN
     Dates: start: 20220727, end: 20240925
  25. ATORVASTATIN [Concomitant]
     Active Substance: ATORVASTATIN
     Dates: start: 20220421
  26. AMLODIPINE [Concomitant]
     Active Substance: AMLODIPINE BESYLATE
     Dates: start: 20230327, end: 20240925
  27. BISOPROLOL [Concomitant]
     Active Substance: BISOPROLOL
     Dates: start: 20220305, end: 20240925
  28. SPIRONOLACTONE [Concomitant]
     Active Substance: SPIRONOLACTONE
     Dates: start: 20220505, end: 20240929
  29. FOLIC ACID [Concomitant]
     Active Substance: FOLIC ACID
     Dates: start: 20240907
  30. CLOPIDOGREL [Concomitant]
     Active Substance: CLOPIDOGREL BISULFATE
     Dates: start: 20220421
  31. CALSIUM [Concomitant]
     Dates: start: 20240918, end: 20240924
  32. NATRIUMGLYCEROPHOSPHAT [Concomitant]
     Dates: start: 20241017, end: 20241017

REACTIONS (2)
  - Cytokine release syndrome [Recovered/Resolved]
  - Infection [Recovered/Resolved]

NARRATIVE: CASE EVENT DATE: 20241017
